FAERS Safety Report 5478959-3 (Version None)
Quarter: 2007Q4

REPORT INFORMATION
  Report Type: 
  Country: None (occurrence: None)
  Receive Date: 20071006
  Receipt Date: 20070925
  Transmission Date: 20080405
  Serious: Yes (Life-Threatening, Hospitalization)
  Sender: FDA-Public Use
  Company Number: FR-PFIZER INC-2007069883

PATIENT
  Sex: Female
  Weight: 68 kg

DRUGS (6)
  1. TRIFLUCAN [Suspect]
     Indication: BRONCHITIS
     Route: 048
     Dates: start: 20070608, end: 20070610
  2. COUMADIN [Interacting]
     Indication: INTERNATIONAL NORMALISED RATIO
     Route: 048
  3. ECONAZOLE NITRATE [Interacting]
     Indication: FUNGAL INFECTION
     Route: 067
     Dates: start: 20070608, end: 20070611
  4. PREDNISONE [Interacting]
     Indication: BRONCHITIS
     Route: 048
     Dates: start: 20070608, end: 20070610
  5. EBASTINE [Concomitant]
     Route: 048
     Dates: start: 20070608, end: 20070630
  6. RAMIPRIL [Concomitant]
     Route: 048

REACTIONS (3)
  - DRUG INTERACTION [None]
  - INTERNATIONAL NORMALISED RATIO INCREASED [None]
  - MALAISE [None]
